FAERS Safety Report 17767637 (Version 2)
Quarter: 2020Q2

REPORT INFORMATION
  Report Type: Report from Study
  Country: US (occurrence: US)
  Receive Date: 20200511
  Receipt Date: 20200619
  Transmission Date: 20200714
  Serious: Yes (Death, Hospitalization, Other)
  Sender: FDA-Public Use
  Company Number: US-ASTRAZENECA-2020SE60329

PATIENT
  Age: 62 Year
  Sex: Male
  Weight: 68.2 kg

DRUGS (23)
  1. OMEPRAZOLE. [Suspect]
     Active Substance: OMEPRAZOLE
     Route: 048
  2. KISQALI [Concomitant]
     Active Substance: RIBOCICLIB
     Dosage: AT 600 MG 21\28 BUT DROPPED TO 400MG DUE TO NEUTROPENIA
     Dates: start: 20180529, end: 201811
  3. AREDIA [Concomitant]
     Active Substance: PAMIDRONATE DISODIUM
     Dosage: 90.0MG UNKNOWN
  4. PRBC [Concomitant]
     Active Substance: HUMAN RED BLOOD CELL
     Dosage: PERIODICALLY
  5. NAMENDA [Concomitant]
     Active Substance: MEMANTINE HYDROCHLORIDE
     Indication: AMNESIA
     Route: 048
  6. LYNPARZA [Suspect]
     Active Substance: OLAPARIB
     Indication: BREAST CANCER MALE
     Dosage: 150 MG IN THE MORNING, 300 MG AT NIGHT
     Route: 048
     Dates: start: 20200129
  7. LYNPARZA [Suspect]
     Active Substance: OLAPARIB
     Indication: BREAST CANCER MALE
     Route: 048
     Dates: start: 20200316, end: 202004
  8. TYLENOL [Concomitant]
     Active Substance: ACETAMINOPHEN
     Route: 048
  9. ERGOCALCIFEROL. [Concomitant]
     Active Substance: ERGOCALCIFEROL
     Dosage: 50000 UNITS, ONCE A WEEK
     Route: 048
  10. LIDODERM [Concomitant]
     Active Substance: LIDOCAINE
  11. AMBIEN CR [Concomitant]
     Active Substance: ZOLPIDEM TARTRATE
     Indication: SLEEP DISORDER
     Route: 048
  12. DENOSUMAB [Concomitant]
     Active Substance: DENOSUMAB
     Dosage: 60 MG ON 29-MAR-2018, 120 MG ON 26-APR-2018
  13. XGEVA [Concomitant]
     Active Substance: DENOSUMAB
     Dosage: 60 ON 29-MAR-2018, 120MG ON 26-APR-2018
     Dates: start: 201803
  14. EMLA [Concomitant]
     Active Substance: LIDOCAINE\PRILOCAINE
     Indication: LOCAL ANAESTHESIA
     Dosage: AS NEEDED
     Route: 061
  15. TEMAZEPAM. [Concomitant]
     Active Substance: TEMAZEPAM
  16. GABAPENTIN. [Concomitant]
     Active Substance: GABAPENTIN
     Dosage: 100MG TID OR 300MG IN THE EVENING
  17. LYNPARZA [Suspect]
     Active Substance: OLAPARIB
     Indication: BREAST CANCER MALE
     Route: 048
     Dates: start: 20200123
  18. TAMOXIFEN [Suspect]
     Active Substance: TAMOXIFEN
     Dosage: 20.0MG UNKNOWN
     Route: 048
     Dates: start: 20180309, end: 201811
  19. CARBO TAXOL [Concomitant]
     Dosage: CYCLE 1: BETWEEN 12-NOV2018 AND 01-DEC-2018, CYCLE 2: BETWEEN 19 AND 26-DEC-2018
     Dates: start: 20181112, end: 20190731
  20. DDAVP [Concomitant]
     Active Substance: DESMOPRESSIN ACETATE
     Indication: NOCTURIA
     Route: 048
  21. LOVENOX [Concomitant]
     Active Substance: ENOXAPARIN SODIUM
     Dates: start: 20181029
  22. XARELTO [Concomitant]
     Active Substance: RIVAROXABAN
     Dates: start: 20180928, end: 20181029
  23. ARANESP [Concomitant]
     Active Substance: DARBEPOETIN ALFA

REACTIONS (25)
  - Thrombocytopenia [Fatal]
  - Malignant neoplasm progression [Unknown]
  - Weight decreased [Unknown]
  - Diabetes insipidus [Unknown]
  - Constipation [Recovered/Resolved]
  - Nausea [Unknown]
  - Anaemia [Unknown]
  - Urosepsis [Unknown]
  - Asthenia [Unknown]
  - Metastases to bone [Unknown]
  - Hypercholesterolaemia [Unknown]
  - Suspected COVID-19 [Unknown]
  - Fatigue [Fatal]
  - Pulmonary embolism [Unknown]
  - Dysgeusia [Unknown]
  - Neuropathy peripheral [Fatal]
  - Metastases to liver [Unknown]
  - Mucosal inflammation [Unknown]
  - Dry skin [Unknown]
  - Oedema [Unknown]
  - Deep vein thrombosis [Recovered/Resolved]
  - Metastases to central nervous system [Unknown]
  - Neutropenia [Unknown]
  - Insomnia [Unknown]
  - Anxiety [Unknown]

NARRATIVE: CASE EVENT DATE: 2018
